FAERS Safety Report 19019244 (Version 3)
Quarter: 2023Q4

REPORT INFORMATION
  Report Type: Spontaneous
  Country: US (occurrence: US)
  Receive Date: 20210317
  Receipt Date: 20231010
  Transmission Date: 20240110
  Serious: Yes (Other)
  Sender: FDA-Public Use
  Company Number: US-SA-SAC20210315000853

PATIENT
  Age: 54 Year
  Sex: Female

DRUGS (1)
  1. FABRAZYME [Suspect]
     Active Substance: AGALSIDASE BETA
     Indication: Fabry^s disease
     Dosage: 60 MG(35MG+25MG), QOW
     Route: 042
     Dates: start: 202103, end: 202309

REACTIONS (11)
  - Cerebrovascular accident [Unknown]
  - Asthma [Unknown]
  - Central nervous system lesion [Unknown]
  - Temperature intolerance [Unknown]
  - Pain in extremity [Unknown]
  - Livedo reticularis [Unknown]
  - Constipation [Unknown]
  - Carpal tunnel syndrome [Unknown]
  - Hypoaesthesia [Unknown]
  - Paraesthesia [Unknown]
  - Illness [Unknown]

NARRATIVE: CASE EVENT DATE: 20230901
